FAERS Safety Report 16412219 (Version 1)
Quarter: 2019Q2

REPORT INFORMATION
  Report Type: Spontaneous
  Country: FR (occurrence: FR)
  Receive Date: 20190610
  Receipt Date: 20190610
  Transmission Date: 20190711
  Serious: Yes (Hospitalization)
  Sender: FDA-Public Use
  Company Number: FR-ALLERGAN-1924003US

PATIENT
  Sex: Female

DRUGS (3)
  1. AZYTER [Suspect]
     Active Substance: AZITHROMYCIN ANHYDROUS
     Indication: CATARACT OPERATION
     Dosage: 2 GTT, QD
     Route: 031
     Dates: start: 20190430, end: 20190514
  2. OCUFEN [Suspect]
     Active Substance: FLURBIPROFEN SODIUM
     Indication: CATARACT OPERATION
     Dosage: 6 GTT, QD
     Route: 031
     Dates: start: 20190430, end: 20190514
  3. DEXAFREE /00016001/ [Suspect]
     Active Substance: DEXAMETHASONE
     Indication: CATARACT OPERATION
     Dosage: 4 GTT, QD
     Route: 031
     Dates: start: 20190430, end: 20190514

REACTIONS (1)
  - Meningitis aseptic [Recovered/Resolved]

NARRATIVE: CASE EVENT DATE: 20190514
